FAERS Safety Report 4325210-3 (Version None)
Quarter: 2004Q1

REPORT INFORMATION
  Report Type: 
  Country: None (occurrence: None)
  Receive Date: 20040323
  Receipt Date: 20040217
  Transmission Date: 20041129
  Serious: No
  Sender: FDA-Public Use
  Company Number: USA031254651

PATIENT
  Age: 75 Year
  Sex: Male

DRUGS (3)
  1. CIALIS [Suspect]
     Indication: ERECTILE DYSFUNCTION
     Dosage: 20 MG
  2. VIAGRA [Concomitant]
  3. VARDENAFIL [Concomitant]

REACTIONS (1)
  - DRUG INEFFECTIVE [None]
